FAERS Safety Report 21038081 (Version 2)
Quarter: 2022Q3

REPORT INFORMATION
  Report Type: Spontaneous
  Country: US (occurrence: US)
  Receive Date: 20220704
  Receipt Date: 20220720
  Transmission Date: 20221026
  Serious: No
  Sender: FDA-Public Use
  Company Number: US-AMGEN-USASP2022111500

PATIENT
  Sex: Female
  Weight: 54.8 kg

DRUGS (1)
  1. MVASI [Suspect]
     Active Substance: BEVACIZUMAB-AWWB
     Indication: Product used for unknown indication
     Dosage: 524 MILLIGRAM
     Route: 065
     Dates: start: 20220531

REACTIONS (1)
  - Intercepted product preparation error [Unknown]
